FAERS Safety Report 7141130-3 (Version None)
Quarter: 2010Q4

REPORT INFORMATION
  Report Type: 
  Country: None (occurrence: None)
  Receive Date: 20101202
  Receipt Date: 20101202
  Transmission Date: 20110411
  Serious: Yes (Disabling, Other)
  Sender: FDA-Public Use
  Company Number: None

PATIENT
  Age: 60 Year
  Sex: Female
  Weight: 63.5036 kg

DRUGS (1)
  1. DESONIDE [Suspect]
     Indication: DERMATITIS
     Dosage: AS NEEDED
     Dates: start: 20060101, end: 20100101

REACTIONS (6)
  - APPLICATION SITE ATROPHY [None]
  - APPLICATION SITE BURN [None]
  - APPLICATION SITE ERYTHEMA [None]
  - APPLICATION SITE REACTION [None]
  - BURNING SENSATION [None]
  - PRURITUS [None]
